FAERS Safety Report 8722690 (Version 2)
Quarter: 2012Q4

REPORT INFORMATION
  Report Type: 
  Country: FR (occurrence: FR)
  Receive Date: 20120814
  Receipt Date: 20120927
  Transmission Date: 20130627
  Serious: Yes (Hospitalization)
  Sender: FDA-Public Use
  Company Number: FR-ROCHE-1097153

PATIENT
  Age: 88 Year
  Sex: Female

DRUGS (1)
  1. ROCEPHINE [Suspect]
     Indication: PYELONEPHRITIS ACUTE
     Route: 058
     Dates: start: 20120627, end: 20120709

REACTIONS (1)
  - Linear IgA disease [Recovered/Resolved]
